FAERS Safety Report 12210304 (Version 1)
Quarter: 2016Q1

REPORT INFORMATION
  Report Type: Spontaneous
  Country: US (occurrence: None)
  Receive Date: 20160324
  Receipt Date: 20160324
  Transmission Date: 20160526
  Serious: Yes (Life-Threatening)
  Sender: FDA-Public Use
  Company Number: None

PATIENT
  Age: 35 Year
  Sex: Female
  Weight: 92.53 kg

DRUGS (13)
  1. XYZOL [Concomitant]
  2. PLEXUS SLIM [Concomitant]
  3. VYVANSE [Concomitant]
     Active Substance: LISDEXAMFETAMINE DIMESYLATE
  4. IRON [Concomitant]
     Active Substance: IRON
  5. PLEXUS BIO-CLEANSE [Concomitant]
  6. GEODON [Suspect]
     Active Substance: ZIPRASIDONE HYDROCHLORIDE\ZIPRASIDONE MESYLATE
     Indication: BIPOLAR I DISORDER
     Dosage: 1 PILL ONCE DAILY TAKEN BY MOUTH
     Route: 048
     Dates: start: 20160111, end: 20160218
  7. LATUDA [Concomitant]
     Active Substance: LURASIDONE HYDROCHLORIDE
  8. ESTRADIOL. [Concomitant]
     Active Substance: ESTRADIOL
  9. GABAPENTIN. [Concomitant]
     Active Substance: GABAPENTIN
  10. PLEXUS PRO-BIO 5 [Concomitant]
  11. TRAZODONE [Concomitant]
     Active Substance: TRAZODONE HYDROCHLORIDE
  12. METOPROLOL. [Concomitant]
     Active Substance: METOPROLOL
  13. TOPAMAX [Concomitant]
     Active Substance: TOPIRAMATE

REACTIONS (12)
  - Irritability [None]
  - Decreased appetite [None]
  - Hypophagia [None]
  - Anxiety [None]
  - Feeling abnormal [None]
  - Feeling of despair [None]
  - Intentional self-injury [None]
  - Depression [None]
  - Drug withdrawal syndrome [None]
  - Suicidal ideation [None]
  - Weight increased [None]
  - Paraesthesia [None]

NARRATIVE: CASE EVENT DATE: 20160218
